FAERS Safety Report 10201563 (Version 1)
Quarter: 2014Q2

REPORT INFORMATION
  Report Type: Spontaneous
  Country: US (occurrence: US)
  Receive Date: 20140528
  Receipt Date: 20140528
  Transmission Date: 20141212
  Serious: Yes (Hospitalization, Other)
  Sender: FDA-Public Use
  Company Number: US-JNJFOC-20140516656

PATIENT
  Age: 23 Year
  Sex: Female

DRUGS (5)
  1. TRAMADOL HYDROCHLORIDE [Suspect]
     Indication: BACK PAIN
     Route: 048
  2. TRAMADOL HYDROCHLORIDE [Suspect]
     Indication: BACK PAIN
     Route: 048
  3. METAXALONE [Interacting]
     Indication: BACK PAIN
     Route: 065
  4. METAXALONE [Interacting]
     Indication: BACK PAIN
     Route: 065
  5. NAPROXEN [Suspect]
     Indication: BACK PAIN
     Route: 065

REACTIONS (4)
  - Suicidal behaviour [Unknown]
  - Serotonin syndrome [Unknown]
  - Intentional overdose [Unknown]
  - Drug interaction [Unknown]
